FAERS Safety Report 19963286 (Version 3)
Quarter: 2021Q4

REPORT INFORMATION
  Report Type: Spontaneous
  Country: US (occurrence: None)
  Receive Date: 20211018
  Receipt Date: 20211123
  Transmission Date: 20220304
  Serious: Yes (Death)
  Sender: FDA-Public Use
  Company Number: US-ROCHE-2938230

PATIENT
  Sex: Male

DRUGS (1)
  1. ESBRIET [Suspect]
     Active Substance: PIRFENIDONE
     Indication: Product used for unknown indication
     Route: 048
     Dates: start: 202011, end: 202106

REACTIONS (4)
  - Pneumonia [Fatal]
  - Pulmonary hypertension [Fatal]
  - Cardiac failure congestive [Fatal]
  - Interstitial lung disease [Fatal]
